FAERS Safety Report 8951587 (Version 2)
Quarter: 2013Q1

REPORT INFORMATION
  Report Type: Report from Study
  Country: US (occurrence: US)
  Receive Date: 20121204
  Receipt Date: 20130117
  Transmission Date: 20140127
  Serious: Yes (Death)
  Sender: FDA-Public Use
  Company Number: US-ROCHE-1161574

PATIENT
  Sex: Male

DRUGS (1)
  1. OMALIZUMAB [Suspect]
     Indication: PRODUCT USED FOR UNKNOWN INDICATION
     Route: 065

REACTIONS (5)
  - Chronic obstructive pulmonary disease [Fatal]
  - Pulmonary hypertension [Fatal]
  - Chronic respiratory failure [Fatal]
  - Hypoxia [Fatal]
  - Emphysema [Fatal]
